FAERS Safety Report 9511755 (Version 1)
Quarter: 2013Q1

REPORT INFORMATION
  Report Type: Spontaneous
  Country: US (occurrence: None)
  Receive Date: 20130305
  Receipt Date: 20130305
  Transmission Date: 20140127
  Serious: Yes (Other)
  Sender: FDA-Public Use
  Company Number: 163-21880-12103496

PATIENT
  Age: 75 Year
  Sex: Male

DRUGS (9)
  1. REVLIMID [Suspect]
     Indication: PLASMA CELL MYELOMA
     Dosage: 15 MG, AT BEDTIME FOR 2, PO
     Route: 048
     Dates: start: 20120907
  2. ATORVASTATIN CALCIUM (ATORVASTATIN CALCIUM) (UKNOWN) [Concomitant]
  3. HUMETANIDE 9HUMETANIDE) (TABLETS) [Concomitant]
  4. CHOLESTYRAMINE (COLESTYRAMINE) (UNKNOWN) [Concomitant]
  5. COUMADIN (WARFARIN SODIUM) (TABLETS) [Concomitant]
  6. DEXAMETHASONE (DEXAMETHASONE) (UNKNOWN) [Concomitant]
  7. DILTIAZEM (DILTIAZEM) (UNKNOWN) (DILTIAZEM) [Concomitant]
  8. LANTUS (INSULIN GLARGINE) (UNKNOWN) [Concomitant]
  9. MINOCYCLINE HCL (MINOCYCLINE HYDROCHLORIDE) (UNKNOWN) [Concomitant]

REACTIONS (1)
  - Blood potassium decreased [None]
